FAERS Safety Report 4653777-4 (Version None)
Quarter: 2005Q2

REPORT INFORMATION
  Report Type: 
  Country: None (occurrence: None)
  Receive Date: 20050504
  Receipt Date: 20050421
  Transmission Date: 20051028
  Serious: Yes (Other)
  Sender: FDA-Public Use
  Company Number: 2005039401

PATIENT
  Age: 51 Year
  Sex: Female
  Weight: 52.1637 kg

DRUGS (10)
  1. CELEBREX [Suspect]
     Indication: PAIN
     Dosage: 200 MG (200 MG, 1 IN 1 D), ORAL
     Route: 048
     Dates: start: 20041014
  2. TOPAMAX [Suspect]
     Indication: FIBROMYALGIA
     Dates: end: 20050101
  3. HYDROCHLOROTHIAZIDE [Concomitant]
  4. LISINOPRIL [Concomitant]
  5. OMEPRAZOLE [Concomitant]
  6. CYCLOBENZAPRINE HYDROCHLORIDE [Concomitant]
  7. NARATRIPTAN HYDROCHLORIDE (NARATRIPTAN HYDROCHLORIDE) [Concomitant]
  8. CETIRIZINE HCL [Concomitant]
  9. FIORICET [Concomitant]
  10. TYLENOL W/ CODEINE [Concomitant]

REACTIONS (3)
  - OEDEMA [None]
  - RETINAL DETACHMENT [None]
  - VISUAL DISTURBANCE [None]
